FAERS Safety Report 5313362-8 (Version None)
Quarter: 2007Q2

REPORT INFORMATION
  Report Type: 
  Country: None (occurrence: None)
  Receive Date: 20070501
  Receipt Date: 20070420
  Transmission Date: 20071010
  Serious: Yes (Death)
  Sender: FDA-Public Use
  Company Number: US-NOVOPROD-260476

PATIENT
  Age: 79 Year
  Sex: Female
  Weight: 50 kg

DRUGS (1)
  1. NOVOSEVEN [Suspect]
     Indication: INTERNATIONAL NORMALISED RATIO INCREASED
     Dosage: 1.2 MG, TWO DOSES
     Route: 042
     Dates: start: 20061009, end: 20061009

REACTIONS (1)
  - HAEMORRHAGE INTRACRANIAL [None]
